FAERS Safety Report 8260396-X (Version None)
Quarter: 2012Q2

REPORT INFORMATION
  Report Type: 
  Country: None (occurrence: None)
  Receive Date: 20120404
  Receipt Date: 20120328
  Transmission Date: 20120825
  Serious: Yes (Other)
  Sender: FDA-Public Use
  Company Number: US-FRI-1000029407

PATIENT
  Age: 48 Year
  Sex: Female

DRUGS (1)
  1. DALIRESP [Suspect]
     Indication: CHRONIC OBSTRUCTIVE PULMONARY DISEASE
     Dosage: 500 MCG
     Route: 048
     Dates: start: 20120322, end: 20120325

REACTIONS (11)
  - ARTHRALGIA [None]
  - NAUSEA [None]
  - PAIN IN EXTREMITY [None]
  - BACK PAIN [None]
  - MALAISE [None]
  - PAIN [None]
  - INFLUENZA LIKE ILLNESS [None]
  - TOXICITY TO VARIOUS AGENTS [None]
  - HEADACHE [None]
  - DIARRHOEA [None]
  - FATIGUE [None]
